FAERS Safety Report 13913467 (Version 1)
Quarter: 2017Q3

REPORT INFORMATION
  Report Type: Spontaneous
  Country: US (occurrence: US)
  Receive Date: 20170828
  Receipt Date: 20170828
  Transmission Date: 20171127
  Serious: No
  Sender: FDA-Public Use
  Company Number: US-ROCHE-1132861

PATIENT
  Sex: Female
  Weight: 24.06 kg

DRUGS (4)
  1. L DOPA [Concomitant]
     Active Substance: LEVODOPA
  2. NUTROPIN [Suspect]
     Active Substance: SOMATROPIN
     Indication: DWARFISM
  3. CLONIDINE. [Concomitant]
     Active Substance: CLONIDINE
     Route: 065
     Dates: start: 19970929
  4. NUTROPIN [Suspect]
     Active Substance: SOMATROPIN
     Indication: GROWTH HORMONE DEFICIENCY
     Route: 058
     Dates: start: 19970929

REACTIONS (1)
  - Headache [Unknown]
